FAERS Safety Report 8026735-X (Version None)
Quarter: 2012Q1

REPORT INFORMATION
  Report Type: 
  Country: None (occurrence: None)
  Receive Date: 20120106
  Receipt Date: 20111226
  Transmission Date: 20120608
  Serious: No
  Sender: FDA-Public Use
  Company Number: US-BIOGENIDEC-2012BI000338

PATIENT
  Age: 56 Year
  Sex: Female

DRUGS (4)
  1. AVONEX [Concomitant]
     Indication: PRODUCT USED FOR UNKNOWN INDICATION
  2. COPAXONE [Concomitant]
  3. TYSABRI [Suspect]
     Indication: PRODUCT USED FOR UNKNOWN INDICATION
  4. REBIF [Concomitant]

REACTIONS (2)
  - MULTIPLE SCLEROSIS [None]
  - BALANCE DISORDER [None]
